FAERS Safety Report 25230427 (Version 2)
Quarter: 2025Q4

REPORT INFORMATION
  Report Type: Report from Study
  Country: US (occurrence: US)
  Receive Date: 20250423
  Receipt Date: 20251008
  Transmission Date: 20260117
  Serious: No
  Sender: AVERITAS
  Company Number: US-GRUNENTHAL-2025-105887

PATIENT
  Age: 73 Year
  Sex: Male

DRUGS (2)
  1. QUTENZA [Suspect]
     Active Substance: CAPSAICIN
     Indication: Diabetic neuropathy
     Dosage: 4 DOSAGE FORM, ONCE
     Route: 061
     Dates: start: 20250404, end: 20250404
  2. QUTENZA [Suspect]
     Active Substance: CAPSAICIN
     Dosage: 3 DOSAGE FORM, ONCE
     Route: 061
     Dates: start: 20250929, end: 20250929

REACTIONS (2)
  - Application site pain [Recovered/Resolved]
  - Application site pain [Not Recovered/Not Resolved]

NARRATIVE: CASE EVENT DATE: 20250404
